FAERS Safety Report 6873262-9 (Version None)
Quarter: 2010Q3

REPORT INFORMATION
  Report Type: 
  Country: None (occurrence: None)
  Receive Date: 20100723
  Receipt Date: 20090107
  Transmission Date: 20110219
  Serious: No
  Sender: FDA-Public Use
  Company Number: US-PFIZER INC-2008155395

PATIENT
  Sex: Female
  Weight: 81.646 kg

DRUGS (2)
  1. CHANTIX [Suspect]
     Indication: SMOKING CESSATION THERAPY
     Dates: start: 20080701, end: 20080701
  2. ORAL CONTRACEPTIVE NOS [Concomitant]

REACTIONS (3)
  - MALAISE [None]
  - MUSCLE SPASMS [None]
  - NAUSEA [None]
